FAERS Safety Report 9871422 (Version 3)
Quarter: 2014Q2

REPORT INFORMATION
  Report Type: Spontaneous
  Country: SE (occurrence: SE)
  Receive Date: 20140205
  Receipt Date: 20140529
  Transmission Date: 20141212
  Serious: Yes (Hospitalization, Other)
  Sender: FDA-Public Use
  Company Number: SE-TEVA-459042ISR

PATIENT
  Age: 21 Year
  Sex: Female

DRUGS (5)
  1. DOXYFERM [Suspect]
     Dates: start: 20140113
  2. MOLLIPECT [Suspect]
     Dates: start: 20140113
  3. COCILLANA-ETYFIN [Suspect]
     Dates: start: 20140113
  4. FLUOXETINE [Concomitant]
  5. PROPAVAN [Concomitant]

REACTIONS (4)
  - Urticaria [Recovered/Resolved]
  - Dyspnoea [Recovered/Resolved]
  - Chest discomfort [Recovered/Resolved]
  - Discomfort [Recovered/Resolved]
